FAERS Safety Report 18577960 (Version 3)
Quarter: 2021Q3

REPORT INFORMATION
  Report Type: Report from Study
  Country: FR (occurrence: FR)
  Receive Date: 20201204
  Receipt Date: 20210917
  Transmission Date: 20211014
  Serious: Yes (Life-Threatening)
  Sender: FDA-Public Use
  Company Number: FR-GLAXOSMITHKLINE-FR2020GSK238061

PATIENT
  Age: 60 Year
  Sex: Female
  Weight: 81 kg

DRUGS (13)
  1. CARBOPLATIN. [Suspect]
     Active Substance: CARBOPLATIN
     Dosage: 5 AUC, Z ?EVERY 3 WEEKS)
     Route: 042
     Dates: start: 20190918, end: 20190918
  2. PACLITAXEL. [Suspect]
     Active Substance: PACLITAXEL
     Indication: OVARIAN CANCER
     Dosage: 324 MG,  Z (EVERY 3 WEEKS)
     Route: 042
     Dates: start: 20190520, end: 20190520
  3. NIRAPARIB [Suspect]
     Active Substance: NIRAPARIB
     Indication: OVARIAN CANCER
     Dosage: 200 MG, QD
     Dates: start: 20191010, end: 20200602
  4. BEVACIZUMAB. [Suspect]
     Active Substance: BEVACIZUMAB
     Indication: OVARIAN CANCER
     Dosage: 7.5 MG/KG, Z (EVERY 3 WEEKS)
     Route: 042
     Dates: start: 20190520, end: 20190520
  5. CAELYX [Concomitant]
     Active Substance: DOXORUBICIN HYDROCHLORIDE
     Indication: OVARIAN CANCER
     Dosage: 30 MG/M2, Z (EVERY 4 WEEKS)
     Route: 042
     Dates: start: 20200623
  6. DOSTARLIMAB [Suspect]
     Active Substance: DOSTARLIMAB
     Indication: OVARIAN CANCER
     Dosage: 500 MG
     Dates: start: 20190612, end: 20190612
  7. DOSTARLIMAB [Suspect]
     Active Substance: DOSTARLIMAB
     Dosage: 1000 MG
     Dates: start: 20200414, end: 20200414
  8. CARBOPLATIN. [Suspect]
     Active Substance: CARBOPLATIN
     Dosage: 5 AUC, Z (EVERY 4 WEEKS)
     Route: 042
     Dates: start: 20200623, end: 20200623
  9. CISPLATIN. [Concomitant]
     Active Substance: CISPLATIN
     Dosage: UNK
  10. PACLITAXEL. [Suspect]
     Active Substance: PACLITAXEL
     Dosage: 306 MG, Z (EVERY 3 WEEKS)
     Route: 042
     Dates: start: 20190917, end: 20190917
  11. CARBOPLATIN. [Suspect]
     Active Substance: CARBOPLATIN
     Indication: OVARIAN CANCER
     Dosage: 5 AUC, Z?,EVERY 3 WEEKS)
     Route: 042
     Dates: start: 20190520, end: 20190520
  12. DOCETAXEL. [Concomitant]
     Active Substance: DOCETAXEL
     Dosage: UNK
  13. BEVACIZUMAB. [Suspect]
     Active Substance: BEVACIZUMAB
     Dosage: 500 MG/KG, Z (EVERY 3 WEEKS)
     Route: 042
     Dates: start: 20200512, end: 20200512

REACTIONS (1)
  - Myelodysplastic syndrome [Not Recovered/Not Resolved]

NARRATIVE: CASE EVENT DATE: 20201110
